FAERS Safety Report 6386720-0 (Version None)
Quarter: 2009Q4

REPORT INFORMATION
  Report Type: 
  Country: None (occurrence: None)
  Receive Date: 20091002
  Receipt Date: 20090923
  Transmission Date: 20100525
  Serious: Yes (Disabling, Other)
  Sender: FDA-Public Use
  Company Number: US-ASTRAZENECA-2009UW18905

PATIENT
  Age: 63 Year
  Sex: Female
  Weight: 108.9 kg

DRUGS (10)
  1. CRESTOR [Suspect]
     Indication: BLOOD CHOLESTEROL INCREASED
     Route: 048
     Dates: start: 20090101, end: 20090521
  2. LYRICA [Concomitant]
  3. NEXIUM [Concomitant]
     Indication: GASTROOESOPHAGEAL REFLUX DISEASE
     Route: 048
     Dates: start: 20051101
  4. SYNTHROID [Concomitant]
     Indication: THYROID DISORDER
     Route: 048
  5. LISINOPRIL [Concomitant]
     Indication: HYPERTENSION
     Route: 048
     Dates: start: 20060401
  6. SYMBICORT [Concomitant]
     Route: 055
  7. XANAX [Concomitant]
     Dosage: PRN
     Route: 048
  8. DARVOCETTNOID [Concomitant]
     Indication: PAIN
     Route: 048
     Dates: start: 20061101
  9. PROZAC [Concomitant]
     Indication: DEPRESSION
     Route: 048
     Dates: start: 20090501
  10. PROPRANOLOL [Concomitant]
     Indication: TREMOR
     Route: 048
     Dates: start: 20090601

REACTIONS (5)
  - ASTHMA [None]
  - BRONCHITIS CHRONIC [None]
  - DYSPNOEA [None]
  - OXYGEN SATURATION DECREASED [None]
  - WHEEZING [None]
